FAERS Safety Report 9097111 (Version 1)
Quarter: 2013Q1

REPORT INFORMATION
  Report Type: Spontaneous
  Country: US (occurrence: None)
  Receive Date: 20130125
  Receipt Date: 20130125
  Transmission Date: 20140127
  Serious: Yes (Death)
  Sender: FDA-Public Use
  Company Number: 2013STPI000012

PATIENT
  Age: 79 Year
  Sex: Male

DRUGS (1)
  1. MATULANE [Suspect]
     Indication: LYMPHOMA
     Dosage: 100 MG, QD X 10 DAYS, ORAL
     Route: 048
     Dates: start: 20121128, end: 20130107

REACTIONS (2)
  - Influenza [None]
  - Pneumonia staphylococcal [None]
